FAERS Safety Report 14630004 (Version 3)
Quarter: 2018Q2

REPORT INFORMATION
  Report Type: Spontaneous
  Country: US (occurrence: US)
  Receive Date: 20180313
  Receipt Date: 20180615
  Transmission Date: 20180711
  Serious: No
  Sender: FDA-Public Use
  Company Number: US-TAKEDA-2018MPI002275

PATIENT
  Age: 62 Year
  Sex: Male

DRUGS (45)
  1. DEXAMETHASONE. [Suspect]
     Active Substance: DEXAMETHASONE
     Indication: PRODUCT USED FOR UNKNOWN INDICATION
     Dosage: UNK
     Route: 048
     Dates: start: 20180210
  2. AMBIEN [Concomitant]
     Active Substance: ZOLPIDEM TARTRATE
     Dosage: UNK
     Route: 065
  3. NOVOLOG [Concomitant]
     Active Substance: INSULIN ASPART
     Dosage: UNK
     Route: 065
     Dates: start: 20180111
  4. FLUOXETINE [Concomitant]
     Active Substance: FLUOXETINE HYDROCHLORIDE
     Dosage: UNK
     Route: 048
     Dates: start: 20171118
  5. ACYCLOVIR                          /00587301/ [Concomitant]
     Active Substance: ACYCLOVIR
     Dosage: UNK
     Route: 048
     Dates: start: 20171014
  6. HYDROCODONE BITARTRATE AND ACETAMINOPHEN [Concomitant]
     Active Substance: ACETAMINOPHEN\HYDROCODONE BITARTRATE
     Dosage: UNK
     Route: 048
     Dates: start: 20171223
  7. TOUJEO [Concomitant]
     Active Substance: INSULIN GLARGINE
     Dosage: UNK
     Route: 065
     Dates: start: 20171204, end: 20180224
  8. NINLARO [Suspect]
     Active Substance: IXAZOMIB CITRATE
     Indication: PLASMA CELL MYELOMA
     Dosage: 40 MG, UNK
     Route: 048
     Dates: start: 20180207
  9. BUPROPION. [Concomitant]
     Active Substance: BUPROPION
     Indication: PRODUCT USED FOR UNKNOWN INDICATION
     Dosage: UNK
     Route: 048
     Dates: start: 20171125
  10. BUPROPION. [Concomitant]
     Active Substance: BUPROPION
     Dosage: UNK
     Route: 048
     Dates: start: 20180119
  11. TRULICITY [Concomitant]
     Active Substance: DULAGLUTIDE
     Indication: PRODUCT USED FOR UNKNOWN INDICATION
     Dosage: UNK
     Route: 065
     Dates: start: 20180219
  12. HYDROCODONE BITARTRATE AND ACETAMINOPHEN [Concomitant]
     Active Substance: ACETAMINOPHEN\HYDROCODONE BITARTRATE
     Indication: PRODUCT USED FOR UNKNOWN INDICATION
     Dosage: UNK
     Route: 048
     Dates: start: 20171105, end: 20180104
  13. POMALYST [Suspect]
     Active Substance: POMALIDOMIDE
     Indication: PLASMA CELL MYELOMA
     Dosage: 4 MG, UNK
     Route: 048
     Dates: start: 20180208
  14. BISACODYL. [Concomitant]
     Active Substance: BISACODYL
     Indication: PRODUCT USED FOR UNKNOWN INDICATION
     Dosage: UNK
     Route: 048
     Dates: start: 20170711, end: 20180208
  15. DOFETILIDE. [Concomitant]
     Active Substance: DOFETILIDE
     Dosage: UNK
     Route: 048
     Dates: start: 20170913
  16. FLUOXETINE [Concomitant]
     Active Substance: FLUOXETINE HYDROCHLORIDE
     Dosage: 20 MG, UNK
     Route: 048
     Dates: start: 20171121
  17. METHYLPHENIDATE. [Concomitant]
     Active Substance: METHYLPHENIDATE
     Dosage: UNK
     Route: 048
     Dates: start: 20180216
  18. BUPROPION. [Concomitant]
     Active Substance: BUPROPION
     Dosage: UNK
     Route: 048
     Dates: start: 20171217
  19. ACYCLOVIR                          /00587301/ [Concomitant]
     Active Substance: ACYCLOVIR
     Indication: PRODUCT USED FOR UNKNOWN INDICATION
     Dosage: UNK
     Route: 048
     Dates: start: 20180109
  20. HYDROCODONE BITARTRATE AND ACETAMINOPHEN [Concomitant]
     Active Substance: ACETAMINOPHEN\HYDROCODONE BITARTRATE
     Dosage: UNK
     Route: 048
     Dates: start: 20180105, end: 20180111
  21. XANAX [Concomitant]
     Active Substance: ALPRAZOLAM
     Dosage: UNK
     Route: 048
     Dates: start: 20180216
  22. ZOLOFT [Concomitant]
     Active Substance: SERTRALINE HYDROCHLORIDE
     Dosage: UNK
     Route: 065
  23. FLUOXETINE [Concomitant]
     Active Substance: FLUOXETINE HYDROCHLORIDE
     Indication: PRODUCT USED FOR UNKNOWN INDICATION
     Dosage: UNK
     Route: 048
     Dates: start: 20171112
  24. FLUOXETINE [Concomitant]
     Active Substance: FLUOXETINE HYDROCHLORIDE
     Dosage: UNK
     Route: 048
     Dates: start: 20171213
  25. FLUOXETINE [Concomitant]
     Active Substance: FLUOXETINE HYDROCHLORIDE
     Dosage: UNK
     Route: 048
     Dates: start: 20180119
  26. METHYLPHENIDATE. [Concomitant]
     Active Substance: METHYLPHENIDATE
     Indication: PRODUCT USED FOR UNKNOWN INDICATION
     Dosage: UNK
     Route: 048
     Dates: start: 20171125
  27. RIZATRIPTAN. [Concomitant]
     Active Substance: RIZATRIPTAN
     Indication: PRODUCT USED FOR UNKNOWN INDICATION
     Dosage: UNK
     Route: 048
     Dates: start: 20180105
  28. DOFETILIDE. [Concomitant]
     Active Substance: DOFETILIDE
     Dosage: UNK
     Route: 048
     Dates: start: 20170910
  29. NOVOLOG [Concomitant]
     Active Substance: INSULIN ASPART
     Indication: PRODUCT USED FOR UNKNOWN INDICATION
     Dosage: UNK
     Route: 065
     Dates: start: 20171107, end: 20180102
  30. HYDROCODONE [Concomitant]
     Active Substance: HYDROCODONE
     Indication: PRODUCT USED FOR UNKNOWN INDICATION
     Dosage: UNK
     Route: 048
  31. METOCLOPRAM [Concomitant]
     Active Substance: METOCLOPRAMIDE
     Indication: PRODUCT USED FOR UNKNOWN INDICATION
     Dosage: UNK
     Route: 048
     Dates: start: 20180101, end: 20180109
  32. BUPROPION. [Concomitant]
     Active Substance: BUPROPION
     Dosage: UNK
     Route: 048
     Dates: start: 20180301
  33. METFORMIN ER [Concomitant]
     Active Substance: METFORMIN HYDROCHLORIDE
     Indication: PRODUCT USED FOR UNKNOWN INDICATION
     Dosage: UNK
     Route: 048
     Dates: start: 20170126
  34. OXYCODONE/APAP                     /00867901/ [Concomitant]
     Active Substance: ACETAMINOPHEN\OXYCODONE HYDROCHLORIDE
     Dosage: UNK
     Route: 048
     Dates: start: 20180216
  35. TRIMETHOBENZAMIDE [Concomitant]
     Active Substance: TRIMETHOBENZAMIDE
     Indication: PRODUCT USED FOR UNKNOWN INDICATION
     Dosage: UNK
     Route: 048
     Dates: start: 20180105
  36. NOVOLOG [Concomitant]
     Active Substance: INSULIN ASPART
     Dosage: UNK
     Route: 065
     Dates: start: 20171208
  37. FLUOXETINE [Concomitant]
     Active Substance: FLUOXETINE HYDROCHLORIDE
     Dosage: UNK
     Route: 048
     Dates: start: 20180222
  38. XARELTO [Concomitant]
     Active Substance: RIVAROXABAN
     Dosage: UNK
     Route: 048
     Dates: start: 20170731
  39. DOFETILIDE. [Concomitant]
     Active Substance: DOFETILIDE
     Indication: PRODUCT USED FOR UNKNOWN INDICATION
     Dosage: UNK
     Route: 048
     Dates: start: 20171009
  40. XANAX [Concomitant]
     Active Substance: ALPRAZOLAM
     Indication: PRODUCT USED FOR UNKNOWN INDICATION
     Dosage: UNK
     Route: 048
     Dates: start: 20170907
  41. NOVOLOG [Concomitant]
     Active Substance: INSULIN ASPART
     Dosage: UNK
     Route: 065
     Dates: start: 20171211
  42. METHYLPHENIDATE. [Concomitant]
     Active Substance: METHYLPHENIDATE
     Dosage: UNK
     Route: 048
     Dates: start: 20171213
  43. XARELTO [Concomitant]
     Active Substance: RIVAROXABAN
     Indication: PRODUCT USED FOR UNKNOWN INDICATION
     Dosage: UNK
     Route: 048
     Dates: start: 20180105, end: 20180202
  44. METFORMIN ER [Concomitant]
     Active Substance: METFORMIN HYDROCHLORIDE
     Dosage: UNK
     Route: 048
     Dates: start: 20180109
  45. TOUJEO [Concomitant]
     Active Substance: INSULIN GLARGINE
     Indication: PRODUCT USED FOR UNKNOWN INDICATION
     Dosage: UNK
     Route: 065
     Dates: start: 20170915

REACTIONS (3)
  - Talipes [Unknown]
  - Neuropathy peripheral [Not Recovered/Not Resolved]
  - Off label use [Unknown]

NARRATIVE: CASE EVENT DATE: 201802
